FAERS Safety Report 8163137-X (Version None)
Quarter: 2012Q1

REPORT INFORMATION
  Report Type: 
  Country: None (occurrence: None)
  Receive Date: 20120224
  Receipt Date: 20110929
  Transmission Date: 20120608
  Serious: No
  Sender: FDA-Public Use
  Company Number: US-PFIZER INC-K201101167

PATIENT
  Sex: Female

DRUGS (1)
  1. FLECTOR [Suspect]
     Indication: ARTHRALGIA
     Dosage: UNK PATCH, BID
     Route: 061
     Dates: start: 20110928

REACTIONS (1)
  - DRUG INEFFECTIVE [None]
